FAERS Safety Report 10073146 (Version 3)
Quarter: 2014Q2

REPORT INFORMATION
  Report Type: Spontaneous
  Country: US (occurrence: US)
  Receive Date: 20140411
  Receipt Date: 20140627
  Transmission Date: 20141212
  Serious: Yes (Hospitalization, Other)
  Sender: FDA-Public Use
  Company Number: US-DENDREON CORPORATION-2014PROUSA03634

PATIENT
  Age: 74 Year
  Sex: Male
  Weight: 78.69 kg

DRUGS (1)
  1. PROVENGE [Suspect]
     Indication: PROSTATE CANCER METASTATIC
     Dosage: 250 ML, SINGLE
     Route: 042
     Dates: start: 20140327, end: 20140327

REACTIONS (7)
  - Hypovolaemia [Unknown]
  - Pneumonia [Unknown]
  - Delirium [Unknown]
  - Hyponatraemia [Unknown]
  - Hepatic enzyme increased [Unknown]
  - Disease progression [Unknown]
  - Hypophagia [Unknown]
